FAERS Safety Report 22259733 (Version 1)
Quarter: 2023Q2

REPORT INFORMATION
  Report Type: Spontaneous
  Country: US (occurrence: None)
  Receive Date: 20230427
  Receipt Date: 20230427
  Transmission Date: 20230721
  Serious: Yes (Other)
  Sender: FDA-Public Use
  Company Number: 2023A092097

PATIENT

DRUGS (1)
  1. SYMBICORT [Suspect]
     Active Substance: BUDESONIDE\FORMOTEROL FUMARATE DIHYDRATE
     Dosage: 160 UG BID
     Route: 055
     Dates: start: 20221215

REACTIONS (9)
  - Visual impairment [Unknown]
  - Dyspnoea [Unknown]
  - Productive cough [Unknown]
  - Choking sensation [Unknown]
  - Feeling abnormal [Unknown]
  - Chills [Unknown]
  - Dysphonia [Unknown]
  - Dry throat [Unknown]
  - Drug ineffective [Unknown]
